FAERS Safety Report 13942263 (Version 2)
Quarter: 2018Q1

REPORT INFORMATION
  Report Type: Spontaneous
  Country: US (occurrence: US)
  Receive Date: 20170906
  Receipt Date: 20180119
  Transmission Date: 20180508
  Serious: Yes (Hospitalization)
  Sender: FDA-Public Use
  Company Number: US-DSJP-DSU-2017-135514

PATIENT

DRUGS (1)
  1. BENICAR [Suspect]
     Active Substance: OLMESARTAN MEDOXOMIL
     Indication: BLOOD PRESSURE MEASUREMENT
     Dosage: 40 MG, QD
     Route: 048
     Dates: start: 20070625, end: 20160514

REACTIONS (5)
  - Hypokalaemia [Recovered/Resolved]
  - Vomiting [Recovered/Resolved]
  - Abdominal pain [Recovering/Resolving]
  - Nausea [Recovered/Resolved]
  - Acute kidney injury [Recovered/Resolved]

NARRATIVE: CASE EVENT DATE: 20100329
